FAERS Safety Report 9892114 (Version 1)
Quarter: 2014Q1

REPORT INFORMATION
  Report Type: Report from Study
  Country: ES (occurrence: ES)
  Receive Date: 20140212
  Receipt Date: 20140212
  Transmission Date: 20141002
  Serious: Yes (Other)
  Sender: FDA-Public Use
  Company Number: ES-GLAXOSMITHKLINE-B0968098A

PATIENT
  Age: 57 Year
  Sex: Male

DRUGS (1)
  1. VOTRIENT [Suspect]
     Indication: CLEAR CELL RENAL CELL CARCINOMA
     Dosage: 800MG PER DAY
     Route: 065
     Dates: start: 201210

REACTIONS (4)
  - Ischaemic cerebral infarction [Recovered/Resolved]
  - Cerebrovascular accident [Unknown]
  - Disorientation [Unknown]
  - Hypertension [Unknown]
